FAERS Safety Report 5593612-3 (Version None)
Quarter: 2008Q1

REPORT INFORMATION
  Report Type: 
  Country: None (occurrence: None)
  Receive Date: 20080116
  Receipt Date: 20080111
  Transmission Date: 20080703
  Serious: Yes (Other)
  Sender: FDA-Public Use
  Company Number: US-BRISTOL-MYERS SQUIBB COMPANY-14030498

PATIENT
  Age: 38 Year
  Sex: Female

DRUGS (2)
  1. ORENCIA [Suspect]
  2. PLAQUENIL [Concomitant]

REACTIONS (1)
  - THYROID CANCER [None]
